FAERS Safety Report 5143087-3 (Version None)
Quarter: 2006Q4

REPORT INFORMATION
  Report Type: 
  Country: None (occurrence: None)
  Receive Date: 20061103
  Receipt Date: 20061019
  Transmission Date: 20070319
  Serious: Yes (Life-Threatening, Hospitalization)
  Sender: FDA-Public Use
  Company Number: SEWYE310323OCT06

PATIENT
  Sex: Male

DRUGS (2)
  1. ENBREL [Suspect]
     Indication: JUVENILE ARTHRITIS
     Route: 058
     Dates: start: 20060201, end: 20060901
  2. METHOTREXATE [Concomitant]
     Indication: JUVENILE ARTHRITIS

REACTIONS (6)
  - DIARRHOEA [None]
  - HAEMATURIA [None]
  - PHARYNGITIS STREPTOCOCCAL [None]
  - PULMONARY HAEMORRHAGE [None]
  - RESPIRATORY TRACT INFECTION [None]
  - WEGENER'S GRANULOMATOSIS [None]
